FAERS Safety Report 15855334 (Version 2)
Quarter: 2019Q1

REPORT INFORMATION
  Report Type: Spontaneous
  Country: ES (occurrence: ES)
  Receive Date: 20190122
  Receipt Date: 20190130
  Transmission Date: 20190417
  Serious: Yes (Life-Threatening, Hospitalization)
  Sender: FDA-Public Use
  Company Number: ES-ABBVIE-19P-144-2630022-00

PATIENT
  Age: 3 Year
  Sex: Male
  Weight: 11 kg

DRUGS (12)
  1. EPINEPHRINE. [Suspect]
     Active Substance: EPINEPHRINE
     Dosage: 0.005 MG/KG, UNK
     Route: 065
  2. PROPRANOLOL [Concomitant]
     Active Substance: PROPRANOLOL HYDROCHLORIDE
     Indication: HYPERTENSION
     Dosage: UNK
     Route: 065
  3. SEVOFLURANE. [Suspect]
     Active Substance: SEVOFLURANE
     Indication: ANAESTHESIA
     Dosage: UP TO 4 VOLS%.
     Route: 055
  4. CISATRACURIO PFIZER [Suspect]
     Active Substance: CISATRACURIUM BESYLATE
     Indication: ANAESTHESIA
     Dosage: 0.2 MG/KG, UNK
     Route: 042
  5. FENTANYL. [Suspect]
     Active Substance: FENTANYL
     Indication: ANAESTHESIA
     Dosage: 1.5 UG/KG, UNK
     Route: 042
  6. MIDAZOLAM [Concomitant]
     Active Substance: MIDAZOLAM HYDROCHLORIDE
     Indication: ANAESTHETIC PREMEDICATION
     Dosage: 3 MILLIGRAM
     Route: 045
  7. EPINEPHRINE. [Suspect]
     Active Substance: EPINEPHRINE
     Indication: BRADYCARDIA
     Dosage: 0.01 MG/KG, UNK
     Route: 065
  8. ATROPINE. [Suspect]
     Active Substance: ATROPINE
     Indication: BRADYCARDIA
     Dosage: UNK
     Route: 065
  9. HUMAN SERUM ALBUMIN [Suspect]
     Active Substance: ALBUMIN HUMAN
     Indication: HYPOTENSION
     Dosage: UNK
     Route: 065
  10. EPINEPHRINE. [Suspect]
     Active Substance: EPINEPHRINE
     Dosage: 0.002 MG/KG, UNK
     Route: 065
  11. EPINEPHRINE. [Suspect]
     Active Substance: EPINEPHRINE
     Dosage: 0.001 MG/KG, UNK
     Route: 065
  12. MILRINONE [Suspect]
     Active Substance: MILRINONE
     Indication: BRADYCARDIA
     Dosage: 0.8 MICROG/KG/MINUTE PERFUSION
     Route: 042

REACTIONS (8)
  - Cardiac failure [Recovered/Resolved]
  - Bradycardia [Recovered/Resolved]
  - Hypoxic-ischaemic encephalopathy [Recovered/Resolved]
  - Electrocardiogram ST segment depression [Recovered/Resolved]
  - Oxygen saturation decreased [Recovered/Resolved]
  - Hypotension [Recovered/Resolved]
  - Cardiac arrest [Recovered/Resolved]
  - Drug ineffective [Unknown]
